FAERS Safety Report 12707526 (Version 1)
Quarter: 2016Q3

REPORT INFORMATION
  Report Type: Spontaneous
  Country: NP (occurrence: NP)
  Receive Date: 20160901
  Receipt Date: 20160901
  Transmission Date: 20161109
  Serious: Yes (Hospitalization)
  Sender: FDA-Public Use
  Company Number: NP-UNICHEM LABORATORIES LIMITED-UCM201608-000194

PATIENT
  Age: 23 Year
  Sex: Female

DRUGS (1)
  1. AMLODIPINE [Suspect]
     Active Substance: AMLODIPINE BESYLATE

REACTIONS (3)
  - Hypotension [Unknown]
  - Non-cardiogenic pulmonary oedema [Recovering/Resolving]
  - Overdose [Unknown]
